FAERS Safety Report 8181835-9 (Version None)
Quarter: 2012Q1

REPORT INFORMATION
  Report Type: 
  Country: None (occurrence: None)
  Receive Date: 20120302
  Receipt Date: 20120220
  Transmission Date: 20120608
  Serious: Yes (Death, Life-Threatening, Hospitalization)
  Sender: FDA-Public Use
  Company Number: DE-WATSON-2012-02979

PATIENT
  Age: 57 Year
  Sex: Female
  Weight: 98 kg

DRUGS (6)
  1. VICTOZA [Suspect]
     Indication: DIABETES MELLITUS
     Dosage: 1 DF, UNKNOWN
     Route: 058
     Dates: start: 20100401
  2. DIURETIKUM VERLA [Concomitant]
     Indication: PRODUCT USED FOR UNKNOWN INDICATION
     Route: 048
  3. METFORMIN HCL [Concomitant]
     Indication: DIABETES MELLITUS
     Route: 048
  4. TAMOXIFEN CITRATE [Suspect]
     Indication: BREAST CANCER
     Dosage: 20 MG, UNKNOWN
     Route: 048
     Dates: start: 20091201
  5. METOPROLOL SUCCINATE [Concomitant]
     Indication: PRODUCT USED FOR UNKNOWN INDICATION
     Route: 048
  6. MOXONIDINE [Concomitant]
     Indication: PRODUCT USED FOR UNKNOWN INDICATION
     Route: 048

REACTIONS (2)
  - RENAL CELL CARCINOMA [None]
  - DEATH [None]
